FAERS Safety Report 21418780 (Version 2)
Quarter: 2022Q4

REPORT INFORMATION
  Report Type: Report from Study
  Country: DK (occurrence: DK)
  Receive Date: 20221006
  Receipt Date: 20221123
  Transmission Date: 20230112
  Serious: Yes (Death, Hospitalization, Other)
  Sender: FDA-Public Use
  Company Number: DK-JNJFOC-20220960109

PATIENT

DRUGS (1)
  1. REMICADE [Suspect]
     Active Substance: INFLIXIMAB
     Indication: Immune-mediated enterocolitis
     Route: 042

REACTIONS (21)
  - Infection [Fatal]
  - Clostridium difficile infection [Unknown]
  - Pneumonia [Unknown]
  - Gastrointestinal infection [Unknown]
  - Urinary tract infection [Unknown]
  - Escherichia sepsis [Unknown]
  - Staphylococcal sepsis [Unknown]
  - Lung abscess [Unknown]
  - Subcutaneous abscess [Unknown]
  - Brain abscess [Unknown]
  - Infection [Unknown]
  - Skin infection [Unknown]
  - Pyrexia [Unknown]
  - Arterial thrombosis [Unknown]
  - Orchitis [Unknown]
  - Tooth abscess [Unknown]
  - Oral candidiasis [Unknown]
  - Deep vein thrombosis [Unknown]
  - Pulmonary embolism [Unknown]
  - Therapeutic product effect incomplete [Unknown]
  - Therapy non-responder [Unknown]
